FAERS Safety Report 5178977-9 (Version None)
Quarter: 2006Q4

REPORT INFORMATION
  Report Type: 
  Country: None (occurrence: None)
  Receive Date: 20061213
  Receipt Date: 20061213
  Transmission Date: 20070319
  Serious: Yes (Hospitalization)
  Sender: FDA-Public Use
  Company Number: None

PATIENT
  Age: 84 Year
  Sex: Male

DRUGS (3)
  1. TAXOTERE [Suspect]
     Indication: OESOPHAGEAL CARCINOMA
     Dosage: 50 MG DAYS 1, 8 , Q21D IV
     Route: 042
     Dates: start: 20060926, end: 20061122
  2. OXALIPLATIN [Suspect]
     Indication: OESOPHAGEAL CARCINOMA
     Dosage: 72MG  DAYS 1, 8, Q21D IV
     Route: 042
     Dates: start: 20060926, end: 20061122
  3. CAPECITABINE [Suspect]
     Indication: OESOPHAGEAL CARCINOMA
     Dosage: 2500MG/D  DAYS 1-10, Q21D PO
     Route: 048
     Dates: start: 20060926, end: 20061122

REACTIONS (8)
  - ARRHYTHMIA SUPRAVENTRICULAR [None]
  - BLADDER OBSTRUCTION [None]
  - BLOOD PRESSURE DIASTOLIC DECREASED [None]
  - DYSPHAGIA [None]
  - HEART RATE INCREASED [None]
  - NODAL ARRHYTHMIA [None]
  - PNEUMONIA [None]
  - TACHYCARDIA [None]
